FAERS Safety Report 5741368-3 (Version None)
Quarter: 2008Q2

REPORT INFORMATION
  Report Type: 
  Country: None (occurrence: None)
  Receive Date: 20080514
  Receipt Date: 20080423
  Transmission Date: 20081010
  Serious: Yes (Other)
  Sender: FDA-Public Use
  Company Number: 2008037200

PATIENT
  Sex: Female

DRUGS (1)
  1. FRAGMIN [Suspect]

REACTIONS (2)
  - IMPAIRED HEALING [None]
  - LOWER LIMB FRACTURE [None]
